FAERS Safety Report 20775306 (Version 2)
Quarter: 2022Q2

REPORT INFORMATION
  Report Type: Report from Study
  Country: TW (occurrence: TW)
  Receive Date: 20220502
  Receipt Date: 20220520
  Transmission Date: 20220721
  Serious: Yes (Hospitalization, Other)
  Sender: FDA-Public Use
  Company Number: TW-BAYER-2022A058414

PATIENT
  Sex: Female

DRUGS (4)
  1. EYLEA [Suspect]
     Active Substance: AFLIBERCEPT
     Indication: Neovascular age-related macular degeneration
     Dosage: 0.05 ML, ONCE, SOLUTION FOR INJECTION
     Route: 031
     Dates: start: 20220214, end: 20220214
  2. EYLEA [Suspect]
     Active Substance: AFLIBERCEPT
     Dosage: 0.05 ML, ONCE, SOLUTION FOR INJECTION
     Route: 031
     Dates: start: 20220303, end: 20220303
  3. EYLEA [Suspect]
     Active Substance: AFLIBERCEPT
     Dosage: 0.05 ML, ONCE, SOLUTION FOR INJECTION
     Route: 031
     Dates: start: 20220412, end: 20220412
  4. EYLEA [Suspect]
     Active Substance: AFLIBERCEPT
     Dosage: 0.05 ML, ONCE, SOLUTION FOR INJECTION
     Route: 031
     Dates: start: 20220518

REACTIONS (5)
  - Conjunctival haemorrhage [Recovered/Resolved]
  - Conjunctival haemorrhage [Not Recovered/Not Resolved]
  - Off label use [Unknown]
  - Multiple use of single-use product [Unknown]
  - Eye disorder [Unknown]

NARRATIVE: CASE EVENT DATE: 20220101
